FAERS Safety Report 7750894-7 (Version None)
Quarter: 2011Q3

REPORT INFORMATION
  Report Type: 
  Country: None (occurrence: None)
  Receive Date: 20110914
  Receipt Date: 20110901
  Transmission Date: 20111222
  Serious: No
  Sender: FDA-Public Use
  Company Number: US-B.I. PHARMACEUTICALS,INC./RIDGEFIELD-2011-BP-21262BP

PATIENT
  Age: 78 Year
  Sex: Male

DRUGS (4)
  1. PRADAXA [Suspect]
     Indication: ATRIAL FIBRILLATION
     Dosage: 300 MG
     Route: 048
     Dates: start: 20110801
  2. ROBAXIN [Concomitant]
     Indication: BACK PAIN
  3. ASPIRIN [Concomitant]
     Indication: STENT PLACEMENT
  4. PLAVIX [Concomitant]
     Indication: STENT PLACEMENT

REACTIONS (1)
  - PAIN IN EXTREMITY [None]
